FAERS Safety Report 20982983 (Version 2)
Quarter: 2022Q3

REPORT INFORMATION
  Report Type: Spontaneous
  Country: AU (occurrence: AU)
  Receive Date: 20220620
  Receipt Date: 20220722
  Transmission Date: 20221027
  Serious: No
  Sender: FDA-Public Use
  Company Number: AU-ALLERGAN-2219265US

PATIENT
  Sex: Male

DRUGS (1)
  1. BOTOX [Suspect]
     Active Substance: ONABOTULINUMTOXINA
     Indication: Muscle disorder
     Dosage: UNK UNK, SINGLE

REACTIONS (2)
  - Off label use [Unknown]
  - Muscular weakness [Recovered/Resolved]
